FAERS Safety Report 25833730 (Version 4)
Quarter: 2025Q4

REPORT INFORMATION
  Report Type: Spontaneous
  Country: US (occurrence: US)
  Receive Date: 20250923
  Receipt Date: 20251214
  Transmission Date: 20260117
  Serious: Yes (Death, Hospitalization, Other)
  Sender: SANOFI AVENTIS
  Company Number: US-SA-2025SA282528

PATIENT
  Age: 67 Year
  Sex: Male

DRUGS (5)
  1. DUPIXENT [Suspect]
     Active Substance: DUPILUMAB
     Indication: Pulmonary fibrosis
     Dosage: 300 MG, QOW
     Route: 058
     Dates: start: 202508, end: 202508
  2. DUPIXENT [Suspect]
     Active Substance: DUPILUMAB
     Indication: Emphysema
  3. OFEV [Concomitant]
     Active Substance: NINTEDANIB
     Indication: Emphysema
  4. OFEV [Concomitant]
     Active Substance: NINTEDANIB
     Indication: Chronic respiratory failure
  5. OFEV [Concomitant]
     Active Substance: NINTEDANIB
     Indication: Hypoxia

REACTIONS (9)
  - Death [Fatal]
  - Dyspnoea [Unknown]
  - Fibrosis [Unknown]
  - Condition aggravated [Unknown]
  - Inflammation [Unknown]
  - Condition aggravated [Unknown]
  - Emphysema [Unknown]
  - Condition aggravated [Unknown]
  - Unintentional use for unapproved indication [Unknown]

NARRATIVE: CASE EVENT DATE: 20250101
